FAERS Safety Report 6824133-5 (Version None)
Quarter: 2010Q3

REPORT INFORMATION
  Report Type: 
  Country: None (occurrence: None)
  Receive Date: 20100708
  Receipt Date: 20061006
  Transmission Date: 20110219
  Serious: No
  Sender: FDA-Public Use
  Company Number: US-PFIZER INC-2006125116

PATIENT
  Sex: Female
  Weight: 63.5 kg

DRUGS (4)
  1. CHANTIX [Suspect]
     Indication: SMOKING CESSATION THERAPY
     Dates: start: 20060924, end: 20061004
  2. LEVONORGESTREL AND ETHINYL ESTRADIOL [Concomitant]
  3. AMOXICILLIN [Concomitant]
     Indication: BRONCHITIS
     Dates: start: 20060101
  4. AMOXICILLIN [Concomitant]
     Indication: NASOPHARYNGITIS

REACTIONS (1)
  - CRYING [None]
